FAERS Safety Report 10681707 (Version 4)
Quarter: 2015Q2

REPORT INFORMATION
  Report Type: Report from Study
  Country: AU (occurrence: AU)
  Receive Date: 20141230
  Receipt Date: 20150507
  Transmission Date: 20150821
  Serious: Yes (Other)
  Sender: FDA-Public Use
  Company Number: PHHY2014AU139583

PATIENT
  Age: 36 Year
  Sex: Male

DRUGS (2)
  1. CLOZARIL [Suspect]
     Active Substance: CLOZAPINE
     Indication: SCHIZOPHRENIA
     Dosage: 6.5-400 MG QD
     Route: 065
     Dates: start: 20000815, end: 200111
  2. CLOZARIL [Suspect]
     Active Substance: CLOZAPINE
     Dosage: 450 OT
     Route: 048
     Dates: start: 20020207

REACTIONS (4)
  - Neutrophilia [Unknown]
  - Leukocytosis [Not Recovered/Not Resolved]
  - Neutrophilia [Recovered/Resolved]
  - Neutrophilia [Recovered/Resolved]

NARRATIVE: CASE EVENT DATE: 20130806
